FAERS Safety Report 5650658-4 (Version None)
Quarter: 2008Q1

REPORT INFORMATION
  Report Type: 
  Country: None (occurrence: None)
  Receive Date: 20080305
  Receipt Date: 20080221
  Transmission Date: 20080703
  Serious: Yes (Other)
  Sender: FDA-Public Use
  Company Number: SE-AMGEN-UK266725

PATIENT
  Sex: Female

DRUGS (1)
  1. NEUPOGEN [Suspect]
     Indication: NEUTROPENIA
     Dates: end: 20080201

REACTIONS (2)
  - DRUG SPECIFIC ANTIBODY PRESENT [None]
  - THERAPEUTIC RESPONSE DECREASED [None]
